FAERS Safety Report 24358550 (Version 1)
Quarter: 2024Q3

REPORT INFORMATION
  Report Type: Spontaneous
  Country: US (occurrence: None)
  Receive Date: 20240924
  Receipt Date: 20240924
  Transmission Date: 20241017
  Serious: Yes (Other)
  Sender: Public
  Company Number: None

PATIENT
  Age: 43 Year
  Sex: Male
  Weight: 65.8 kg

DRUGS (1)
  1. QULIPTA [Suspect]
     Active Substance: ATOGEPANT
     Indication: Migraine prophylaxis
     Dosage: FREQUENCY : DAILY;?
     Route: 048
     Dates: start: 20240830, end: 20240923

REACTIONS (3)
  - Sleep disorder [None]
  - Palpitations [None]
  - Erectile dysfunction [None]

NARRATIVE: CASE EVENT DATE: 20240923
